FAERS Safety Report 11712905 (Version 1)
Quarter: 2015Q4

REPORT INFORMATION
  Report Type: Spontaneous
  Country: CA (occurrence: CA)
  Receive Date: 20151108
  Receipt Date: 20151108
  Transmission Date: 20160304
  Serious: Yes (Other)
  Sender: FDA-Public Use
  Company Number: CA-TEVA-606002ACC

PATIENT
  Age: 32 Year
  Sex: Female

DRUGS (2)
  1. CLARITHROMYCIN. [Suspect]
     Active Substance: CLARITHROMYCIN
     Indication: TONSILLITIS
     Dosage: 1000 MILLIGRAM DAILY;
     Route: 048
  2. CITALOPRAM [Interacting]
     Active Substance: CITALOPRAM HYDROBROMIDE
     Indication: PRODUCT USED FOR UNKNOWN INDICATION
     Dosage: 30 MILLIGRAM DAILY;
     Route: 048

REACTIONS (11)
  - Agitation [Recovered/Resolved]
  - Drug interaction [Recovered/Resolved]
  - Rash [Recovered/Resolved]
  - Vomiting [Recovered/Resolved]
  - Palpitations [Recovered/Resolved]
  - Tachycardia [Recovered/Resolved]
  - Migraine [Recovered/Resolved]
  - Nausea [Recovered/Resolved]
  - Vision blurred [Recovered/Resolved]
  - Insomnia [Recovered/Resolved]
  - Lacrimation increased [Recovered/Resolved]
